FAERS Safety Report 21503430 (Version 2)
Quarter: 2022Q4

REPORT INFORMATION
  Report Type: Spontaneous
  Country: US (occurrence: US)
  Receive Date: 20221025
  Receipt Date: 20221031
  Transmission Date: 20230113
  Serious: No
  Sender: FDA-Public Use
  Company Number: US-PFIZER INC-PV202200089053

PATIENT
  Age: 57 Year
  Sex: Female

DRUGS (2)
  1. IBRANCE [Suspect]
     Active Substance: PALBOCICLIB
     Dosage: 100 MG DAILY 3 WEEKS THEN 1 WEEK OFF
     Route: 048
     Dates: start: 20220806
  2. FASLODEX [Suspect]
     Active Substance: FULVESTRANT
     Dosage: UNK

REACTIONS (8)
  - Hypersensitivity [Not Recovered/Not Resolved]
  - Illness [Unknown]
  - Nausea [Recovered/Resolved]
  - Asthma [Unknown]
  - Pyrexia [Unknown]
  - Malaise [Unknown]
  - Sinusitis [Unknown]
  - Pain [Unknown]

NARRATIVE: CASE EVENT DATE: 20220101
